FAERS Safety Report 6695999-7 (Version None)
Quarter: 2010Q2

REPORT INFORMATION
  Report Type: 
  Country: None (occurrence: None)
  Receive Date: 20100426
  Receipt Date: 20100412
  Transmission Date: 20101027
  Serious: Yes (Hospitalization, Disabling)
  Sender: FDA-Public Use
  Company Number: PHHY2010DE10139

PATIENT
  Sex: Male
  Weight: 88 kg

DRUGS (1)
  1. EXFORGE [Suspect]
     Indication: HYPERTENSION
     Dosage: 160/10 MG, UNK
     Dates: start: 20090206

REACTIONS (1)
  - ADENOCARCINOMA [None]
